FAERS Safety Report 10301755 (Version 1)
Quarter: 2014Q3

REPORT INFORMATION
  Report Type: Spontaneous
  Country: US (occurrence: US)
  Receive Date: 20140714
  Receipt Date: 20140714
  Transmission Date: 20150326
  Serious: No
  Sender: FDA-Public Use
  Company Number: US-PFIZER INC-2014194495

PATIENT
  Age: 65 Year
  Sex: Female

DRUGS (1)
  1. LYRICA [Suspect]
     Active Substance: PREGABALIN
     Indication: NEURALGIA
     Dosage: UNK (100 MG IN THE MORNING, 100 MG IN AFTERNOON AND 200 MG AT NIGHT), 3X/DAY
     Dates: end: 20140629

REACTIONS (5)
  - Vomiting [Unknown]
  - Local swelling [Unknown]
  - Pruritus [Unknown]
  - Weight increased [Unknown]
  - Hypoaesthesia [Unknown]

NARRATIVE: CASE EVENT DATE: 201406
